FAERS Safety Report 7414281-3 (Version None)
Quarter: 2011Q2

REPORT INFORMATION
  Report Type: 
  Country: None (occurrence: None)
  Receive Date: 20110411
  Receipt Date: 20110411
  Transmission Date: 20111010
  Serious: Yes (Other)
  Sender: FDA-Public Use
  Company Number: None

PATIENT
  Age: 93 Year
  Sex: Female
  Weight: 44.9061 kg

DRUGS (1)
  1. NITROGLYCERIN [Suspect]
     Indication: MYOCARDIAL INFARCTION
     Dosage: 1 PATCH DAILY TRANSDERMAL
     Route: 062
     Dates: start: 20100610, end: 20110408

REACTIONS (4)
  - APPLICATION SITE PRURITUS [None]
  - APPLICATION SITE ERYTHEMA [None]
  - PRODUCT ADHESION ISSUE [None]
  - PRODUCT QUALITY ISSUE [None]
